FAERS Safety Report 6341512-3 (Version None)
Quarter: 2009Q3

REPORT INFORMATION
  Report Type: 
  Country: None (occurrence: None)
  Receive Date: 20090902
  Receipt Date: 20090902
  Transmission Date: 20100115
  Serious: Yes (Other)
  Sender: FDA-Public Use
  Company Number: None

PATIENT
  Age: 48 Year
  Sex: Female
  Weight: 68.0396 kg

DRUGS (1)
  1. FOLIC ACID [Suspect]
     Indication: KNEE ARTHROPLASTY
     Dosage: 1 TABLET 3 TIMES A DAY OTHER
     Route: 050
     Dates: start: 20090821, end: 20090830

REACTIONS (1)
  - BLOOD ALKALINE PHOSPHATASE INCREASED [None]
